FAERS Safety Report 10286019 (Version 2)
Quarter: 2014Q4

REPORT INFORMATION
  Report Type: Spontaneous
  Country: US (occurrence: None)
  Receive Date: 20140703
  Receipt Date: 20141125
  Transmission Date: 20150528
  Serious: Yes (Other)
  Sender: FDA-Public Use
  Company Number: AEGR000492

PATIENT
  Age: 44 Year
  Sex: Female
  Weight: 135.1 kg

DRUGS (18)
  1. CRESTOR [Concomitant]
     Active Substance: ROSUVASTATIN CALCIUM
  2. CLONIDINE. [Concomitant]
     Active Substance: CLONIDINE
  3. JUXTAPID [Suspect]
     Active Substance: LOMITAPIDE MESYLATE
     Indication: TYPE IIA HYPERLIPIDAEMIA
     Route: 048
     Dates: start: 201405, end: 201407
  4. EFFIENT (PRASUGREL HYDROCHLORIDE) [Concomitant]
  5. ASPIRIN. [Concomitant]
     Active Substance: ASPIRIN
  6. BYSTOLIC [Concomitant]
     Active Substance: NEBIVOLOL HYDROCHLORIDE
  7. GLIMEPRIDE [Concomitant]
     Active Substance: GLIMEPIRIDE
  8. ISOSORBIDE MONONITRATE. [Concomitant]
     Active Substance: ISOSORBIDE MONONITRATE
  9. VITAMIN D3 [Concomitant]
     Active Substance: CHOLECALCIFEROL
  10. GABAPENTIN. [Concomitant]
     Active Substance: GABAPENTIN
  11. TRIBENZOR (AMLODIPINE BESILATE, HYDROCHLOROTHIAZIDE, OLMESARTAN MEDOXOMIL) [Concomitant]
  12. POTASSIUM CHLORIDE. [Concomitant]
     Active Substance: POTASSIUM CHLORIDE
  13. METFORMIN [Concomitant]
     Active Substance: METFORMIN HYDROCHLORIDE
  14. LABETALOL [Concomitant]
     Active Substance: LABETALOL\LABETALOL HYDROCHLORIDE
  15. DEXILANT [Concomitant]
     Active Substance: DEXLANSOPRAZOLE
  16. CYMBALTA [Concomitant]
     Active Substance: DULOXETINE HYDROCHLORIDE
  17. FUROSEMIDE. [Concomitant]
     Active Substance: FUROSEMIDE
  18. ZETIA [Concomitant]
     Active Substance: EZETIMIBE

REACTIONS (7)
  - Abdominal pain upper [None]
  - Diarrhoea [None]
  - Cardiac failure congestive [None]
  - Nausea [None]
  - Vomiting [None]
  - Weight increased [None]
  - Feeling jittery [None]

NARRATIVE: CASE EVENT DATE: 20140517
